FAERS Safety Report 6077976-2 (Version None)
Quarter: 2009Q1

REPORT INFORMATION
  Report Type: 
  Country: None (occurrence: None)
  Receive Date: 20090213
  Receipt Date: 20090204
  Transmission Date: 20090719
  Serious: Yes (Other)
  Sender: FDA-Public Use
  Company Number: JP-PFIZER INC-2009165652

PATIENT

DRUGS (6)
  1. CARDENALIN [Suspect]
     Indication: HYPERTENSION
     Dosage: 4 MG, 1X/DAY
     Dates: start: 20080924
  2. CARDENALIN [Suspect]
     Dosage: 1 MG, 1X/DAY
     Dates: start: 20081224
  3. CARDENALIN [Suspect]
     Dosage: 2 MG, 1X/DAY
     Dates: start: 20081028
  4. BUFFERIN [Concomitant]
     Route: 048
  5. VALSARTAN [Concomitant]
     Route: 048
  6. AMLODIN [Concomitant]
     Route: 048

REACTIONS (1)
  - CARDIAC FAILURE [None]
